FAERS Safety Report 5392557-1 (Version None)
Quarter: 2007Q3

REPORT INFORMATION
  Report Type: 
  Country: None (occurrence: None)
  Receive Date: 20070720
  Receipt Date: 20070711
  Transmission Date: 20080115
  Serious: Yes (Death)
  Sender: FDA-Public Use
  Company Number: GB-BOEHRINGER INGELHEIM PHARMACEUTICALS, INC.-2006-DE-04954GD

PATIENT
  Age: 43 Year
  Sex: Female

DRUGS (3)
  1. NEVIRAPINE [Suspect]
     Indication: HIV INFECTION
     Dates: start: 19990303, end: 19990317
  2. STAVUDINE [Concomitant]
     Indication: HIV INFECTION
     Dates: start: 19990303
  3. LAMIVUDINE [Concomitant]
     Indication: HIV INFECTION
     Dates: start: 19990303

REACTIONS (1)
  - NON-HODGKIN'S LYMPHOMA [None]
